FAERS Safety Report 5361839-1 (Version None)
Quarter: 2007Q2

REPORT INFORMATION
  Report Type: 
  Country: None (occurrence: None)
  Receive Date: 20070619
  Receipt Date: 20070608
  Transmission Date: 20071010
  Serious: Yes (Other)
  Sender: FDA-Public Use
  Company Number: PHEH2007US08569

PATIENT
  Age: 82 Year
  Sex: Female

DRUGS (1)
  1. LESCOL XL [Suspect]
     Indication: HYPERLIPIDAEMIA
     Dosage: 80 MG, QD
     Route: 048
     Dates: start: 20060416, end: 20070530

REACTIONS (4)
  - ASTHENIA [None]
  - DYSURIA [None]
  - MYALGIA [None]
  - RENAL IMPAIRMENT [None]
